FAERS Safety Report 5479411-1 (Version None)
Quarter: 2007Q4

REPORT INFORMATION
  Report Type: 
  Country: None (occurrence: None)
  Receive Date: 20071008
  Receipt Date: 20070928
  Transmission Date: 20080405
  Serious: Yes (Other)
  Sender: FDA-Public Use
  Company Number: FRWYE238729AUG07

PATIENT
  Age: 78 Year
  Sex: Male
  Weight: 80 kg

DRUGS (16)
  1. RAPAMUNE [Suspect]
     Indication: PROPHYLAXIS AGAINST TRANSPLANT REJECTION
     Route: 048
     Dates: start: 20070516, end: 20070824
  2. RAPAMUNE [Suspect]
     Indication: SKIN CANCER
  3. COZAAR [Concomitant]
     Route: 048
     Dates: start: 20030215
  4. MODAMIDE [Concomitant]
     Route: 048
     Dates: start: 19890130
  5. DIFFU K [Concomitant]
     Dosage: 2 TABLETS TOTAL DAILY
     Route: 048
     Dates: start: 19890130
  6. CHRONADALATE [Concomitant]
     Route: 048
     Dates: start: 19881201
  7. TENORMIN [Concomitant]
     Route: 048
     Dates: start: 19881201
  8. ASPEGIC 325 [Concomitant]
     Dosage: UNKNOWN
  9. DEDROGYL [Concomitant]
     Dosage: UNKNOWN
  10. ZYLORIC [Concomitant]
     Dosage: UNKNOWN
  11. TAHOR [Concomitant]
     Dosage: UNKNOWN
  12. TARDYFERON [Concomitant]
     Dosage: UNKNOWN
  13. NOVONORM [Concomitant]
     Dosage: UNKNOWN
  14. RABEPRAZOLE SODIUM [Concomitant]
     Dosage: UNKNOWN
  15. ARANESP [Concomitant]
     Dosage: UNKNOWN
  16. LASIX [Concomitant]
     Dosage: 250 MG TOTAL DAILY
     Route: 048
     Dates: start: 20030128

REACTIONS (7)
  - ANOREXIA [None]
  - ASTHENIA [None]
  - INTERSTITIAL LUNG DISEASE [None]
  - PULMONARY TUBERCULOSIS [None]
  - PYREXIA [None]
  - SYSTEMIC INFLAMMATORY RESPONSE SYNDROME [None]
  - WEIGHT DECREASED [None]
